FAERS Safety Report 13372651 (Version 1)
Quarter: 2017Q1

REPORT INFORMATION
  Report Type: Spontaneous
  Country: US (occurrence: US)
  Receive Date: 20170327
  Receipt Date: 20170327
  Transmission Date: 20170429
  Serious: Yes (Other)
  Sender: FDA-Public Use
  Company Number: US-BAYER-2017-053710

PATIENT
  Sex: Female

DRUGS (1)
  1. ALEVE [Suspect]
     Active Substance: NAPROXEN SODIUM
     Indication: ARTHRALGIA
     Dosage: 1 DF, UNK
     Route: 065
     Dates: start: 201702, end: 201702

REACTIONS (4)
  - Dyspnoea [Unknown]
  - Heart rate increased [None]
  - Pruritus generalised [Unknown]
  - Seizure [Unknown]

NARRATIVE: CASE EVENT DATE: 201702
